FAERS Safety Report 13472504 (Version 1)
Quarter: 2017Q2

REPORT INFORMATION
  Report Type: Spontaneous
  Country: US (occurrence: US)
  Receive Date: 20170424
  Receipt Date: 20170424
  Transmission Date: 20170830
  Serious: Yes (Hospitalization, Other)
  Sender: FDA-Public Use
  Company Number: US-TEVA-762031USA

PATIENT
  Age: 78 Year
  Sex: Female

DRUGS (1)
  1. METHYLPREDNISOLONE. [Suspect]
     Active Substance: METHYLPREDNISOLONE
     Route: 065
     Dates: start: 20120912

REACTIONS (6)
  - Dural abscess [Recovered/Resolved]
  - Extradural abscess [Recovered/Resolved]
  - Transverse sinus thrombosis [Recovered/Resolved]
  - Exserohilum infection [Recovered/Resolved]
  - Product contamination [Recovered/Resolved]
  - Venous thrombosis [Recovered/Resolved]
